FAERS Safety Report 4317251-7 (Version None)
Quarter: 2004Q1

REPORT INFORMATION
  Report Type: 
  Country: None (occurrence: None)
  Receive Date: 20040312
  Receipt Date: 20040302
  Transmission Date: 20041129
  Serious: Yes (Life-Threatening, Hospitalization, Other)
  Sender: FDA-Public Use
  Company Number: 2003-02-1555

PATIENT
  Age: 58 Year
  Sex: Male
  Weight: 66 kg

DRUGS (6)
  1. INTRON A [Suspect]
     Indication: HEPATITIS C
     Dosage: SEE IMAGE
     Route: 058
     Dates: start: 20020225, end: 20020318
  2. INTRON A [Suspect]
     Indication: HEPATITIS C
     Dosage: SEE IMAGE
     Route: 058
     Dates: start: 20020319, end: 20021011
  3. INTRON A [Suspect]
     Indication: HEPATITIS C
     Dosage: SEE IMAGE
     Route: 058
     Dates: start: 20020225, end: 20030211
  4. INTRON A [Suspect]
     Indication: HEPATITIS C
     Dosage: SEE IMAGE
     Route: 058
     Dates: start: 20021012, end: 20030211
  5. REBETOL [Suspect]
     Indication: HEPATITIS C
     Dosage: 800 MG QD ORAL
     Route: 048
     Dates: start: 20020225, end: 20020815
  6. ZYLORIC [Concomitant]

REACTIONS (13)
  - AMNESIA [None]
  - BRAIN CONTUSION [None]
  - BRAIN OEDEMA [None]
  - CEREBELLAR HAEMATOMA [None]
  - CEREBRAL INFARCTION [None]
  - CEREBROVASCULAR SPASM [None]
  - DISORIENTATION [None]
  - EYELID OEDEMA [None]
  - HAEMATOMA [None]
  - HEAD INJURY [None]
  - HEARING IMPAIRED [None]
  - PAPILLOEDEMA [None]
  - SUBARACHNOID HAEMORRHAGE [None]
